FAERS Safety Report 12269809 (Version 1)
Quarter: 2016Q2

REPORT INFORMATION
  Report Type: Spontaneous
  Country: FR (occurrence: FR)
  Receive Date: 20160415
  Receipt Date: 20160415
  Transmission Date: 20160815
  Serious: Yes (Other)
  Sender: FDA-Public Use
  Company Number: FR-ASTRAZENECA-2016SE39160

PATIENT
  Age: 781 Month
  Sex: Female

DRUGS (8)
  1. LAMICTAL [Suspect]
     Active Substance: LAMOTRIGINE
     Indication: BIPOLAR I DISORDER
     Route: 048
     Dates: start: 2012
  2. CYMBALTA [Suspect]
     Active Substance: DULOXETINE HYDROCHLORIDE
     Indication: BIPOLAR I DISORDER
     Route: 048
     Dates: start: 201601
  3. MIANSERIN [Suspect]
     Active Substance: MIANSERIN
     Indication: BIPOLAR I DISORDER
     Route: 048
     Dates: start: 201403, end: 201505
  4. XEROQUEL [Suspect]
     Active Substance: QUETIAPINE FUMARATE
     Indication: BIPOLAR I DISORDER
     Route: 048
     Dates: start: 201306
  5. TERCIAN [Suspect]
     Active Substance: CYAMEMAZINE
     Indication: BIPOLAR I DISORDER
     Route: 048
     Dates: start: 2012
  6. LOXAPAC [Suspect]
     Active Substance: LOXAPINE SUCCINATE
     Indication: BIPOLAR I DISORDER
     Route: 048
     Dates: start: 201302, end: 201306
  7. NORDAZ [Suspect]
     Active Substance: NORDAZEPAM
     Indication: BIPOLAR I DISORDER
     Route: 048
     Dates: start: 201406, end: 201409
  8. TERALITHE [Suspect]
     Active Substance: LITHIUM CARBONATE
     Indication: BIPOLAR I DISORDER
     Route: 048
     Dates: start: 201302

REACTIONS (1)
  - Cognitive disorder [Unknown]

NARRATIVE: CASE EVENT DATE: 201302
